FAERS Safety Report 9097896 (Version 1)
Quarter: 2013Q1

REPORT INFORMATION
  Report Type: Spontaneous
  Country: US (occurrence: US)
  Receive Date: 20130212
  Receipt Date: 20130212
  Transmission Date: 20140127
  Serious: No
  Sender: FDA-Public Use
  Company Number: US-PFIZER INC-2013054649

PATIENT
  Age: 37 Year
  Sex: Female
  Weight: 79.37 kg

DRUGS (1)
  1. ADVIL [Suspect]
     Indication: BACK PAIN
     Dosage: 200 MG, EVERY 4-6 HOURS AS NEEDED
     Route: 048
     Dates: start: 2011, end: 2011

REACTIONS (1)
  - Drug ineffective [Recovered/Resolved]
